FAERS Safety Report 6330028-6 (Version None)
Quarter: 2009Q3

REPORT INFORMATION
  Report Type: 
  Country: None (occurrence: None)
  Receive Date: 20090825
  Receipt Date: 20090814
  Transmission Date: 20100115
  Serious: Yes (Hospitalization)
  Sender: FDA-Public Use
  Company Number: CLOF-1000647

PATIENT
  Age: 58 Year
  Sex: Female
  Weight: 82.4 kg

DRUGS (19)
  1. CLOLAR [Suspect]
     Indication: ACUTE MYELOID LEUKAEMIA
     Dosage: 82 MG, QDX5, INTRAVENOUS
     Route: 042
     Dates: start: 20090609, end: 20090613
  2. BUSULFAN (BUSULFAN) [Suspect]
     Indication: ACUTE MYELOID LEUKAEMIA
     Dosage: 240 MG, QDX2, INTRAVENOUS
     Route: 042
     Dates: start: 20090610, end: 20090611
  3. ENBREL [Concomitant]
  4. RITUXAN [Concomitant]
  5. ACYCLOVIR [Concomitant]
  6. ADVAIR DISKUS 100/50 [Concomitant]
  7. ATIVAN [Concomitant]
  8. BUPROPION HCL [Concomitant]
  9. COMPAZINE (PROCHLORPERAZINE BESYLATE) [Concomitant]
  10. HYDROCORTISONE (SALICYLIC ACID) [Concomitant]
  11. LEVAQUIN [Concomitant]
  12. LISINOPRIL (LISINOPRIL DIHYDRATE) [Concomitant]
  13. MAGNESIUM SULFATE [Concomitant]
  14. METOPROLOL TARTRATE [Concomitant]
  15. PROTONIX [Concomitant]
  16. RESTASIS (CICLOSPORIN) [Concomitant]
  17. TACROLIMUS [Concomitant]
  18. URSODIOL [Concomitant]
  19. VFEND [Concomitant]

REACTIONS (1)
  - OBLITERATIVE BRONCHIOLITIS [None]
